FAERS Safety Report 8450893-6 (Version None)
Quarter: 2012Q2

REPORT INFORMATION
  Report Type: 
  Country: None (occurrence: None)
  Receive Date: 20120620
  Receipt Date: 20120612
  Transmission Date: 20120825
  Serious: Yes (Other)
  Sender: FDA-Public Use
  Company Number: US-UCBSA-059532

PATIENT
  Age: 63 Year
  Sex: Female
  Weight: 103 kg

DRUGS (5)
  1. PLAQUENIL [Concomitant]
     Indication: RHEUMATOID ARTHRITIS
     Route: 048
     Dates: start: 20111201
  2. NEXAPRO [Concomitant]
  3. LEXAPRO [Concomitant]
  4. CIMZIA [Suspect]
     Indication: RHEUMATOID ARTHRITIS
     Route: 058
     Dates: start: 20120608, end: 20120608
  5. SYNTHROID [Concomitant]

REACTIONS (1)
  - ANAPHYLACTIC SHOCK [None]
